FAERS Safety Report 15066706 (Version 1)
Quarter: 2018Q2

REPORT INFORMATION
  Report Type: Spontaneous
  Country: US (occurrence: US)
  Receive Date: 20180626
  Receipt Date: 20180626
  Transmission Date: 20180711
  Serious: No
  Sender: FDA-Public Use
  Company Number: US-MYLANLABS-2018M1040333

PATIENT
  Sex: Female
  Weight: 63.5 kg

DRUGS (1)
  1. GLATIRAMER [Suspect]
     Active Substance: GLATIRAMER
     Indication: MULTIPLE SCLEROSIS
     Dosage: UNK
     Route: 058
     Dates: start: 20180517, end: 20180606

REACTIONS (5)
  - Injection site swelling [Recovering/Resolving]
  - Chest discomfort [Recovering/Resolving]
  - Injection site pain [Recovering/Resolving]
  - Urticaria [Recovering/Resolving]
  - Injection site erythema [Unknown]
